FAERS Safety Report 14296993 (Version 1)
Quarter: 2017Q4

REPORT INFORMATION
  Report Type: Spontaneous
  Country: JP (occurrence: JP)
  Receive Date: 20171218
  Receipt Date: 20171218
  Transmission Date: 20180321
  Serious: Yes (Other)
  Sender: FDA-Public Use
  Company Number: JP-GLAXOSMITHKLINE-JP2017JPN190857

PATIENT
  Age: 44 Year
  Sex: Female

DRUGS (1)
  1. DUAC GEL [Suspect]
     Active Substance: BENZOYL PEROXIDE\CLINDAMYCIN PHOSPHATE
     Indication: ACNE
     Dosage: UNK UNK, QD
     Route: 050
     Dates: start: 20170520, end: 201710

REACTIONS (3)
  - Exposure during pregnancy [Unknown]
  - Colitis [Unknown]
  - Haematochezia [Unknown]

NARRATIVE: CASE EVENT DATE: 201707
